FAERS Safety Report 19664945 (Version 2)
Quarter: 2024Q3

REPORT INFORMATION
  Report Type: Spontaneous
  Country: US (occurrence: US)
  Receive Date: 20210806
  Receipt Date: 20240802
  Transmission Date: 20241016
  Serious: Yes (Other)
  Sender: ACCORD
  Company Number: US-ACCORD-179971

PATIENT
  Age: 49 Year
  Sex: Female
  Weight: 66.68 kg

DRUGS (12)
  1. DOCETAXEL [Suspect]
     Active Substance: DOCETAXEL\DOCETAXEL ANHYDROUS
     Indication: Breast cancer
     Dosage: 133 MG IV PER 250 ML(5) OVER 60 MINUTES
     Route: 042
     Dates: start: 20130828, end: 20131211
  2. PARAPLATIN [Suspect]
     Active Substance: CARBOPLATIN
     Indication: Breast cancer
  3. HERCEPTIN [Suspect]
     Active Substance: TRASTUZUMAB
     Indication: Breast cancer
  4. LORTAB [Concomitant]
     Active Substance: ACETAMINOPHEN\HYDROCODONE BITARTRATE
  5. NEULASTA [Concomitant]
     Active Substance: PEGFILGRASTIM
  6. LORAZEPAM [Concomitant]
     Active Substance: LORAZEPAM
  7. DECADRON [Concomitant]
     Active Substance: DEXAMETHASONE
  8. PROMETHAZINE [Concomitant]
     Active Substance: PROMETHAZINE HYDROCHLORIDE
  9. Folate B12 [Concomitant]
  10. ALOXI [Concomitant]
     Active Substance: PALONOSETRON HYDROCHLORIDE
  11. DEXAMETHASONE [Concomitant]
     Active Substance: DEXAMETHASONE
  12. DIPHENHYDRAMINE [Concomitant]
     Active Substance: DIPHENHYDRAMINE

REACTIONS (1)
  - Alopecia [Not Recovered/Not Resolved]

NARRATIVE: CASE EVENT DATE: 20140711
